FAERS Safety Report 19570721 (Version 1)
Quarter: 2021Q3

REPORT INFORMATION
  Report Type: Spontaneous
  Country: CN (occurrence: CN)
  Receive Date: 20210716
  Receipt Date: 20210716
  Transmission Date: 20211014
  Serious: Yes (Hospitalization)
  Sender: FDA-Public Use
  Company Number: CN-ASTRAZENECA-2021A612341

PATIENT
  Age: 75 Year
  Sex: Male

DRUGS (1)
  1. SAXAGLIPTIN [Suspect]
     Active Substance: SAXAGLIPTIN
     Indication: BLOOD GLUCOSE DECREASED
     Route: 048
     Dates: start: 20210702, end: 20210705

REACTIONS (4)
  - Speech disorder [Unknown]
  - Dizziness [Unknown]
  - Asthenia [Unknown]
  - Hypoglycaemia [Unknown]

NARRATIVE: CASE EVENT DATE: 20210705
